FAERS Safety Report 10341949 (Version 1)
Quarter: 2014Q3

REPORT INFORMATION
  Report Type: Spontaneous
  Country: US (occurrence: None)
  Receive Date: 20140724
  Receipt Date: 20140724
  Transmission Date: 20150326
  Serious: Yes (Other)
  Sender: FDA-Public Use
  Company Number: None

PATIENT
  Age: 59 Year
  Sex: Female

DRUGS (1)
  1. NEULASTA [Suspect]
     Active Substance: PEGFILGRASTIM
     Indication: NEUTROPENIA
     Dosage: 6MG, EVERY 21 DAYS, SQ
     Route: 058
     Dates: start: 20140714

REACTIONS (4)
  - Flushing [None]
  - Feeling hot [None]
  - Palpitations [None]
  - Refusal of treatment by patient [None]

NARRATIVE: CASE EVENT DATE: 20140710
